FAERS Safety Report 14227685 (Version 2)
Quarter: 2018Q1

REPORT INFORMATION
  Report Type: Spontaneous
  Country: FR (occurrence: FR)
  Receive Date: 20171127
  Receipt Date: 20180126
  Transmission Date: 20180508
  Serious: Yes (Other)
  Sender: FDA-Public Use
  Company Number: FR-OTSUKA-2016_027736

PATIENT
  Age: 38 Year
  Sex: Female

DRUGS (1)
  1. ABILIFY [Suspect]
     Active Substance: ARIPIPRAZOLE
     Indication: PRODUCT USED FOR UNKNOWN INDICATION
     Dosage: UNK, (ABOUT EARLY JUL-2016)
     Route: 065

REACTIONS (2)
  - Abortion spontaneous [Unknown]
  - Maternal exposure before pregnancy [Unknown]
